FAERS Safety Report 7032064 (Version 10)
Quarter: 2012Q4

REPORT INFORMATION
  Report Type: Report from Study
  Country: FR (occurrence: FR)
  Receive Date: 20090624
  Receipt Date: 20121129
  Transmission Date: 20130627
  Serious: Yes (Hospitalization, Other)
  Sender: FDA-Public Use
  Company Number: FR-PFIZER INC-2009226352

PATIENT
  Age: 77 Year
  Sex: Male
  Weight: 73 kg

DRUGS (3)
  1. SUNITINIB MALATE [Suspect]
     Indication: PANCREATIC NEOPLASM
     Dosage: 25 mg, 1x/day
     Route: 048
     Dates: start: 20081029, end: 20090519
  2. AMLOR [Concomitant]
     Dosage: 5 mg, UNK
     Route: 048
  3. SANDOSTATINE [Concomitant]
     Dosage: 30 mg, monthly
     Route: 030

REACTIONS (3)
  - General physical health deterioration [Recovered/Resolved]
  - Decreased appetite [Recovered/Resolved]
  - Neutropenia [Recovered/Resolved]
